FAERS Safety Report 7737058-8 (Version None)
Quarter: 2011Q3

REPORT INFORMATION
  Report Type: 
  Country: None (occurrence: None)
  Receive Date: 20110908
  Receipt Date: 20110829
  Transmission Date: 20111222
  Serious: Yes (Hospitalization, Other)
  Sender: FDA-Public Use
  Company Number: US-ROCHE-790336

PATIENT
  Age: 56 Year
  Sex: Male
  Weight: 75.8 kg

DRUGS (4)
  1. RIBAVIRIN [Suspect]
     Indication: HEPATITIS C
     Route: 048
     Dates: start: 20110705, end: 20110712
  2. TELAPREVIR [Suspect]
     Indication: HEPATITIS C
     Route: 048
     Dates: start: 20110705, end: 20110712
  3. PERCOCET [Concomitant]
     Indication: PAIN
  4. PEGASYS [Suspect]
     Indication: HEPATITIS C
     Route: 058
     Dates: start: 20110705, end: 20110712

REACTIONS (7)
  - DEHYDRATION [None]
  - HEPATITIS C [None]
  - MALAISE [None]
  - HAEMOGLOBIN DECREASED [None]
  - PAIN IN EXTREMITY [None]
  - ANAEMIA [None]
  - BONE INFARCTION [None]
